FAERS Safety Report 4439076-4 (Version None)
Quarter: 2004Q3

REPORT INFORMATION
  Report Type: 
  Country: None (occurrence: None)
  Receive Date: 20040830
  Receipt Date: 20040812
  Transmission Date: 20050211
  Serious: Yes (Life-Threatening)
  Sender: FDA-Public Use
  Company Number: DSA_24466_2004

PATIENT
  Age: 41 Year
  Sex: Male

DRUGS (4)
  1. TEVETEN [Suspect]
     Indication: HYPERTENSION
     Dosage: 600 MG ONCE PO
     Route: 048
     Dates: start: 20040521, end: 20040521
  2. AMLODIPINE [Concomitant]
  3. VALSARTAN [Concomitant]
  4. FORMOTEROL [Concomitant]

REACTIONS (1)
  - BRONCHOSPASM [None]
